FAERS Safety Report 8307796-7 (Version None)
Quarter: 2012Q2

REPORT INFORMATION
  Report Type: 
  Country: None (occurrence: None)
  Receive Date: 20120424
  Receipt Date: 20120412
  Transmission Date: 20120825
  Serious: Yes (Other)
  Sender: FDA-Public Use
  Company Number: US-PFIZER INC-2012091845

PATIENT
  Sex: Male
  Weight: 89.342 kg

DRUGS (13)
  1. PEPCID [Concomitant]
     Indication: GASTROINTESTINAL PAIN
     Dosage: 40 MG, 2X/DAY
     Route: 048
     Dates: start: 20120330, end: 20120404
  2. SENNA [Concomitant]
     Indication: CONSTIPATION
     Dosage: 1 TAB PRN
     Route: 048
     Dates: start: 20110912
  3. AMBIEN [Concomitant]
     Indication: INSOMNIA
     Dosage: 10 MG, HS PRN
     Route: 048
     Dates: start: 20111201
  4. CRIZOTINIB [Suspect]
     Indication: NON-SMALL CELL LUNG CANCER
     Dosage: 250 MG, 2X/DAY
     Route: 048
     Dates: start: 20110829, end: 20110919
  5. WELLBUTRIN XL [Concomitant]
     Indication: DEPRESSION
     Dosage: 300 MG, QAM
     Route: 048
     Dates: start: 20111104
  6. MILK OF MAGNESIA TAB [Concomitant]
     Indication: CONSTIPATION
     Dosage: 30 ML, AS NEEDED
     Route: 048
     Dates: start: 20100314
  7. DULCOLAX [Concomitant]
     Indication: CONSTIPATION
     Dosage: 10 MG, AS NEEDED, PR
     Dates: start: 20100314
  8. METRONIDAZOLE [Concomitant]
     Indication: GASTROINTESTINAL PAIN
     Dosage: 500 MG, 3X/DAY
     Route: 048
     Dates: start: 20120319, end: 20120329
  9. VALIUM [Concomitant]
     Indication: ANXIETY
     Dosage: 5 MG, AS NEEDED
     Route: 048
     Dates: start: 20100330
  10. NEXIUM [Concomitant]
     Indication: GASTROINTESTINAL PAIN
     Dosage: 40 MG, 2X/DAY
     Route: 048
     Dates: start: 20111201, end: 20120330
  11. MORPHINE [Concomitant]
     Indication: GASTROINTESTINAL PAIN
     Dosage: 15 MG, AS NEEDED
     Route: 048
     Dates: start: 20110922
  12. GAS-X [Concomitant]
     Indication: ABDOMINAL DISTENSION
     Dosage: 166 MG, AS NEEDED
     Route: 048
     Dates: start: 20120319, end: 20120330
  13. CRIZOTINIB [Suspect]
     Dosage: 200 MG, 2X/DAY
     Route: 048
     Dates: start: 20111010

REACTIONS (11)
  - ALANINE AMINOTRANSFERASE INCREASED [None]
  - GASTRITIS [None]
  - ASPARTATE AMINOTRANSFERASE INCREASED [None]
  - DEPRESSION [None]
  - DECREASED APPETITE [None]
  - ABDOMINAL DISTENSION [None]
  - FLATULENCE [None]
  - CONSTIPATION [None]
  - HYPOALBUMINAEMIA [None]
  - GASTRIC ULCER [None]
  - OESOPHAGITIS [None]
